FAERS Safety Report 19454767 (Version 1)
Quarter: 2021Q2

REPORT INFORMATION
  Report Type: Spontaneous
  Country: DE (occurrence: DE)
  Receive Date: 20210623
  Receipt Date: 20210623
  Transmission Date: 20210717
  Serious: Yes (Life-Threatening, Hospitalization)
  Sender: FDA-Public Use
  Company Number: DE-MYLANLABS-2021M1036630

PATIENT
  Age: 26 Year
  Sex: Male
  Weight: 83 kg

DRUGS (2)
  1. AMLODIPINE [Suspect]
     Active Substance: AMLODIPINE BESYLATE
     Indication: PRODUCT USED FOR UNKNOWN INDICATION
     Dosage: 500 MILLIGRAM
     Route: 065
  2. RAMIPRIL. [Suspect]
     Active Substance: RAMIPRIL
     Indication: PRODUCT USED FOR UNKNOWN INDICATION
     Dosage: 700 MILLIGRAM
     Route: 065

REACTIONS (7)
  - Intentional overdose [Recovering/Resolving]
  - Atrial fibrillation [Recovering/Resolving]
  - Suicide attempt [Recovering/Resolving]
  - Shock [Recovering/Resolving]
  - Cardiovascular insufficiency [Recovering/Resolving]
  - Pulmonary congestion [Recovering/Resolving]
  - Pleural effusion [Recovering/Resolving]
